FAERS Safety Report 18193626 (Version 3)
Quarter: 2020Q4

REPORT INFORMATION
  Report Type: Spontaneous
  Country: GB (occurrence: GB)
  Receive Date: 20200825
  Receipt Date: 20201009
  Transmission Date: 20210113
  Serious: Yes (Other)
  Sender: FDA-Public Use
  Company Number: GB-PFIZER INC-2020324059

PATIENT
  Age: 54 Year
  Sex: Female

DRUGS (1)
  1. SOLU-CORTEF [Suspect]
     Active Substance: HYDROCORTISONE SODIUM SUCCINATE
     Indication: ADDISON^S DISEASE
     Dosage: UNK
     Route: 058

REACTIONS (4)
  - Adrenocortical insufficiency acute [Not Recovered/Not Resolved]
  - Product complaint [Unknown]
  - Off label use [Unknown]
  - Incorrect route of product administration [Unknown]
